FAERS Safety Report 8790654 (Version 1)
Quarter: 2012Q4

REPORT INFORMATION
  Report Type: Spontaneous
  Country: US (occurrence: None)
  Receive Date: 20120913
  Receipt Date: 20120913
  Transmission Date: 20130627
  Serious: No
  Sender: FDA-Public Use
  Company Number: None

PATIENT

DRUGS (2)
  1. CREST 3D WHITE ADVANCED VIVID ENAMEL RENEWAL [Suspect]
     Indication: BURNING SENSATION
     Route: 048
  2. CREST 3D WHITE ADVANCED VIVID ENAMEL RENEWAL [Suspect]
     Indication: GASTROINTESTINAL DISORDER
     Route: 048

REACTIONS (4)
  - Dyspepsia [None]
  - Abdominal discomfort [None]
  - Chest pain [None]
  - Gastrooesophageal reflux disease [None]
